FAERS Safety Report 5104674-1 (Version None)
Quarter: 2006Q3

REPORT INFORMATION
  Report Type: 
  Country: None (occurrence: None)
  Receive Date: 20060914
  Receipt Date: 20060830
  Transmission Date: 20061208
  Serious: Yes (Hospitalization)
  Sender: FDA-Public Use
  Company Number: US-AMGEN-US191750

PATIENT
  Age: 48 Year
  Sex: Female

DRUGS (6)
  1. ENBREL [Suspect]
     Indication: ANKYLOSING SPONDYLITIS
     Route: 058
     Dates: start: 20011101
  2. RELPAX [Concomitant]
  3. PHENERGAN [Concomitant]
  4. ZOLOFT [Concomitant]
  5. AMITRIPTYLINE HCL [Concomitant]
  6. KLONOPIN [Concomitant]

REACTIONS (16)
  - ARTHRALGIA [None]
  - ARTHROPATHY [None]
  - ASTHENIA [None]
  - ATRIAL FIBRILLATION [None]
  - BACK DISORDER [None]
  - DRUG EFFECT DECREASED [None]
  - DYSPNOEA [None]
  - GAIT DISTURBANCE [None]
  - INJECTION SITE PAIN [None]
  - INSOMNIA [None]
  - MITRAL VALVE INCOMPETENCE [None]
  - NECK PAIN [None]
  - PAIN [None]
  - STRESS FRACTURE [None]
  - SYNOVIAL DISORDER [None]
  - VITAMIN D DEFICIENCY [None]
